FAERS Safety Report 10584463 (Version 1)
Quarter: 2014Q4

REPORT INFORMATION
  Report Type: Spontaneous
  Country: US (occurrence: US)
  Receive Date: 20141114
  Receipt Date: 20141114
  Transmission Date: 20150529
  Serious: No
  Sender: FDA-Public Use
  Company Number: US-ENDO PHARMACEUTICALS INC.-VANT20130068

PATIENT
  Age: 80 Year
  Sex: Male

DRUGS (1)
  1. VANTAS [Suspect]
     Active Substance: HISTRELIN ACETATE
     Indication: PRODUCT USED FOR UNKNOWN INDICATION
     Route: 058
     Dates: end: 20131204

REACTIONS (2)
  - Implant site thrombosis [Unknown]
  - Implant site swelling [Unknown]

NARRATIVE: CASE EVENT DATE: 2013
